FAERS Safety Report 7340868-2 (Version None)
Quarter: 2011Q1

REPORT INFORMATION
  Report Type: 
  Country: None (occurrence: None)
  Receive Date: 20110228
  Receipt Date: 20110211
  Transmission Date: 20110831
  Serious: Yes (Congenital Anomaly)
  Sender: FDA-Public Use
  Company Number: 8042422

PATIENT
  Sex: Male

DRUGS (7)
  1. FOLIC ACID [Concomitant]
  2. LAMICTAL [Concomitant]
  3. PRENATAL VITAMINS /01549301/ [Concomitant]
  4. KEPPRA [Suspect]
     Indication: CONVULSION
     Dosage: SEE IMAGE
     Route: 064
     Dates: start: 20070501
  5. KEPPRA [Suspect]
     Indication: CONVULSION
     Dosage: SEE IMAGE
     Route: 064
     Dates: start: 20070815
  6. KEPPRA [Suspect]
     Indication: CONVULSION
     Dosage: SEE IMAGE
     Route: 064
     Dates: end: 20090110
  7. IRON [Concomitant]

REACTIONS (12)
  - EAR INFECTION [None]
  - RESPIRATORY SYNCYTIAL VIRUS INFECTION [None]
  - EYE DISCHARGE [None]
  - NASOPHARYNGITIS [None]
  - HYPOSPADIAS [None]
  - CARDIAC MURMUR [None]
  - CONJUNCTIVITIS [None]
  - WHEEZING [None]
  - VIRAL INFECTION [None]
  - MATERNAL DRUGS AFFECTING FOETUS [None]
  - UPPER RESPIRATORY TRACT INFECTION [None]
  - LARYNGOMALACIA [None]
